FAERS Safety Report 9371687 (Version 1)
Quarter: 2013Q2

REPORT INFORMATION
  Report Type: Spontaneous
  Country: US (occurrence: US)
  Receive Date: 20130627
  Receipt Date: 20130627
  Transmission Date: 20140414
  Serious: No
  Sender: FDA-Public Use
  Company Number: US-PFIZER INC-2013189661

PATIENT
  Age: 51 Year
  Sex: Female

DRUGS (3)
  1. XALKORI [Suspect]
     Indication: TRACHEAL CANCER
     Dosage: 250 MG, 2X/DAY (1 CAPSULE TWICE A DAY)
     Route: 048
     Dates: start: 201305
  2. XALKORI [Suspect]
     Indication: BRONCHIAL CARCINOMA
  3. XALKORI [Suspect]
     Indication: LUNG NEOPLASM MALIGNANT

REACTIONS (1)
  - Diarrhoea [Unknown]
